FAERS Safety Report 24458705 (Version 1)
Quarter: 2024Q4

REPORT INFORMATION
  Report Type: Spontaneous
  Country: US (occurrence: None)
  Receive Date: 20241017
  Receipt Date: 20241017
  Transmission Date: 20250114
  Serious: Yes (Hospitalization)
  Sender: Public
  Company Number: None

PATIENT
  Age: 77 Year
  Sex: Male
  Weight: 85 kg

DRUGS (1)
  1. ALBUTEROL [Suspect]
     Active Substance: ALBUTEROL
     Indication: Dyspnoea
     Dosage: OTHER FREQUENCY : ONCE;?
     Route: 055
     Dates: start: 20240409, end: 20240409

REACTIONS (3)
  - Dyspnoea [None]
  - Tachycardia [None]
  - Atrial fibrillation [None]

NARRATIVE: CASE EVENT DATE: 20240409
